FAERS Safety Report 14999010 (Version 1)
Quarter: 2018Q2

REPORT INFORMATION
  Report Type: Spontaneous
  Country: GB (occurrence: GB)
  Receive Date: 20180612
  Receipt Date: 20180612
  Transmission Date: 20180711
  Serious: Yes (Hospitalization)
  Sender: FDA-Public Use
  Company Number: GB-TEVA-2018-GB-905079

PATIENT
  Age: 64 Year
  Sex: Female
  Weight: 115 kg

DRUGS (13)
  1. COLECALCIFEROL [Concomitant]
     Active Substance: CHOLECALCIFEROL
  2. FUROSEMIDE. [Concomitant]
     Active Substance: FUROSEMIDE
  3. FERROUS SULFATE. [Concomitant]
     Active Substance: FERROUS SULFATE
  4. THIAMINE. [Concomitant]
     Active Substance: THIAMINE
  5. PARACETAMOL [Concomitant]
     Active Substance: ACETAMINOPHEN
  6. CHLORPHENAMINE [Concomitant]
     Active Substance: CHLORPHENIRAMINE MALEATE
  7. QUININE [Concomitant]
     Active Substance: QUININE
  8. VANCOMYCIN [Suspect]
     Active Substance: VANCOMYCIN
     Indication: ARTHRITIS INFECTIVE
     Dosage: 4 GRAM DAILY;
     Route: 042
     Dates: start: 20180319, end: 20180324
  9. AMLODIPINE [Concomitant]
     Active Substance: AMLODIPINE BESYLATE
  10. ALENDRONIC ACID [Concomitant]
     Active Substance: ALENDRONIC ACID
  11. ENOXAPARIN [Concomitant]
     Active Substance: ENOXAPARIN
  12. CODEINE [Concomitant]
     Active Substance: CODEINE
  13. MIRTAZAPINE. [Concomitant]
     Active Substance: MIRTAZAPINE

REACTIONS (2)
  - Drug level increased [Recovered/Resolved]
  - Renal impairment [Recovered/Resolved]

NARRATIVE: CASE EVENT DATE: 20180324
